FAERS Safety Report 4715735-0 (Version None)
Quarter: 2005Q2

REPORT INFORMATION
  Report Type: 
  Country: None (occurrence: None)
  Receive Date: 20050629
  Receipt Date: 20050509
  Transmission Date: 20051028
  Serious: No
  Sender: FDA-Public Use
  Company Number: SP00424

PATIENT
  Age: 48 Year
  Sex: Female

DRUGS (1)
  1. XIFAXAN [Suspect]
     Indication: CROHN'S DISEASE
     Dosage: 400MG/BID, ORAL
     Route: 048
     Dates: start: 20050325, end: 20050327

REACTIONS (4)
  - DEFAECATION URGENCY [None]
  - DIARRHOEA [None]
  - FLATULENCE [None]
  - GASTROINTESTINAL PAIN [None]
